FAERS Safety Report 10606348 (Version 4)
Quarter: 2018Q3

REPORT INFORMATION
  Report Type: Report from Study
  Country: AR (occurrence: AR)
  Receive Date: 20141125
  Receipt Date: 20180813
  Transmission Date: 20181010
  Serious: Yes (Hospitalization)
  Sender: FDA-Public Use
  Company Number: PHHY2014AR148742

PATIENT
  Sex: Female

DRUGS (4)
  1. TEGRETOL [Suspect]
     Active Substance: CARBAMAZEPINE
     Indication: MULTIPLE SCLEROSIS
     Dosage: UNK
     Route: 065
     Dates: start: 2010
  2. GILENYA [Suspect]
     Active Substance: FINGOLIMOD HYDROCHLORIDE
     Dosage: 1 DF, QD
     Route: 048
     Dates: start: 201402
  3. VALIUM [Concomitant]
     Active Substance: DIAZEPAM
     Indication: SLEEP DISORDER
     Dosage: 5 MG, QD
     Route: 065
  4. GILENYA [Suspect]
     Active Substance: FINGOLIMOD HYDROCHLORIDE
     Indication: MULTIPLE SCLEROSIS
     Dosage: 0.5 MG, QD
     Route: 048
     Dates: start: 201310

REACTIONS (13)
  - Multiple sclerosis relapse [Unknown]
  - Muscle fatigue [Recovered/Resolved]
  - Monoplegia [Recovering/Resolving]
  - Gait disturbance [Recovered/Resolved]
  - Memory impairment [Recovering/Resolving]
  - Weight increased [Unknown]
  - Paraesthesia [Recovering/Resolving]
  - Stress [Unknown]
  - Limb discomfort [Recovered/Resolved]
  - Pain [Recovered/Resolved]
  - Nervousness [Recovering/Resolving]
  - Distractibility [Recovering/Resolving]
  - Pain in extremity [Recovering/Resolving]

NARRATIVE: CASE EVENT DATE: 2017
